FAERS Safety Report 13732961 (Version 1)
Quarter: 2017Q3

REPORT INFORMATION
  Report Type: Spontaneous
  Country: US (occurrence: US)
  Receive Date: 20170707
  Receipt Date: 20170707
  Transmission Date: 20171127
  Serious: No
  Sender: FDA-Public Use
  Company Number: US-ROCHE-1187890

PATIENT
  Age: 58 Year
  Sex: Male
  Weight: 83.54 kg

DRUGS (15)
  1. GUAIFENESIN. [Concomitant]
     Active Substance: GUAIFENESIN
     Route: 048
  2. CYTOVENE IV [Suspect]
     Active Substance: GANCICLOVIR SODIUM
     Indication: CYTOMEGALOVIRUS VIRAEMIA
     Route: 042
     Dates: start: 20130123, end: 20130204
  3. LISINOPRIL. [Concomitant]
     Active Substance: LISINOPRIL
     Dosage: LAST ADMINIISTERED ON 04/FEB/2013
     Route: 048
  4. SEVELAMER HYDROCHLORIDE [Concomitant]
     Active Substance: SEVELAMER HYDROCHLORIDE
     Dosage: LAST ADMINIISTERED ON 04/FEB/2013
     Route: 048
  5. RALTEGRAVIR. [Concomitant]
     Active Substance: RALTEGRAVIR
     Dosage: LAST ADMINIISTERED ON 04/FEB/2013
     Route: 048
  6. DIGOXIN. [Concomitant]
     Active Substance: DIGOXIN
     Dosage: LAST ADMINISTERED ON 04/FEB/2013
     Route: 048
  7. HEPARIN [Concomitant]
     Active Substance: HEPARIN SODIUM
     Dosage: LAST ADMINISTRATION: 04/FEB/2013, 2500 UNITS PER 500 ML
     Route: 042
  8. HEPARIN SODIUM. [Concomitant]
     Active Substance: HEPARIN SODIUM
     Route: 042
  9. WARFARIN SODIUM. [Concomitant]
     Active Substance: WARFARIN SODIUM
     Route: 048
  10. EPOETIN ALFA [Concomitant]
     Active Substance: ERYTHROPOIETIN
     Route: 042
  11. TYLENOL [Concomitant]
     Active Substance: ACETAMINOPHEN
     Indication: ARTHRALGIA
     Route: 065
  12. PANTOPRAZOL [Concomitant]
     Active Substance: PANTOPRAZOLE SODIUM
     Dosage: LAST ADMINIISTERED ON 04/FEB/2013
     Route: 048
  13. EMTRICITABINE [Concomitant]
     Active Substance: EMTRICITABINE
     Dosage: LAST ADMINIISTERED ON 01/FEB/2013
     Route: 048
  14. VALCYTE [Suspect]
     Active Substance: VALGANCICLOVIR HYDROCHLORIDE
     Indication: CYTOMEGALOVIRUS VIRAEMIA
     Route: 048
     Dates: start: 20130121, end: 20130121
  15. TENOFOVIR DISOPROXIL FUMARATE. [Concomitant]
     Active Substance: TENOFOVIR DISOPROXIL FUMARATE
     Dosage: LAST ADMINIISTERED ON 01/FEB/2013
     Route: 048

REACTIONS (4)
  - Cytomegalovirus test positive [Unknown]
  - Cytomegalovirus viraemia [Unknown]
  - Pneumonia [Unknown]
  - Pyrexia [Unknown]

NARRATIVE: CASE EVENT DATE: 20130201
